FAERS Safety Report 11559652 (Version 1)
Quarter: 2015Q3

REPORT INFORMATION
  Report Type: Spontaneous
  Country: BR (occurrence: BR)
  Receive Date: 20150928
  Receipt Date: 20150928
  Transmission Date: 20151125
  Serious: Yes (Hospitalization, Other)
  Sender: FDA-Public Use
  Company Number: BR-ROCHE-1635696

PATIENT
  Age: 40 Year
  Sex: Female

DRUGS (7)
  1. ERIBULIN [Suspect]
     Active Substance: ERIBULIN
     Indication: PRODUCT USED FOR UNKNOWN INDICATION
     Route: 065
     Dates: start: 20150819
  2. TRASTUZUMAB EMTANSINE [Suspect]
     Active Substance: ADO-TRASTUZUMAB EMTANSINE
     Indication: PRODUCT USED FOR UNKNOWN INDICATION
     Route: 065
     Dates: start: 20140926
  3. CAPECITABINE. [Suspect]
     Active Substance: CAPECITABINE
     Indication: PRODUCT USED FOR UNKNOWN INDICATION
     Route: 065
     Dates: start: 20130430
  4. VINORELBINE [Suspect]
     Active Substance: VINORELBINE\VINORELBINE TARTRATE
     Indication: PRODUCT USED FOR UNKNOWN INDICATION
     Route: 065
     Dates: start: 20131101
  5. DOCETAXEL. [Suspect]
     Active Substance: DOCETAXEL
     Indication: TUMOUR ULCERATION
     Route: 065
     Dates: end: 20120601
  6. HERCEPTIN [Suspect]
     Active Substance: TRASTUZUMAB
     Indication: TUMOUR ULCERATION
     Route: 065
     Dates: start: 20120601
  7. LAPATINIB [Suspect]
     Active Substance: LAPATINIB
     Indication: PRODUCT USED FOR UNKNOWN INDICATION
     Route: 065
     Dates: start: 20130430

REACTIONS (4)
  - Malignant neoplasm progression [Unknown]
  - Skin mass [Unknown]
  - Metastases to lung [Unknown]
  - Lymphangitis [Unknown]

NARRATIVE: CASE EVENT DATE: 20140628
